FAERS Safety Report 5777998-2 (Version None)
Quarter: 2008Q2

REPORT INFORMATION
  Report Type: 
  Country: None (occurrence: None)
  Receive Date: 20080619
  Receipt Date: 20080611
  Transmission Date: 20081010
  Serious: Yes (Hospitalization, Other)
  Sender: FDA-Public Use
  Company Number: US-BAYER-200714293BWH

PATIENT
  Age: 72 Year
  Sex: Male

DRUGS (2)
  1. NEXAVAR [Suspect]
     Indication: RENAL CELL CARCINOMA
     Dosage: TOTAL DAILY DOSE: 800 MG  UNIT DOSE: 200 MG
     Route: 048
     Dates: start: 20071019
  2. ZOMETA [Concomitant]

REACTIONS (10)
  - ANOREXIA [None]
  - BLOOD PRESSURE INCREASED [None]
  - CONSTIPATION [None]
  - DIARRHOEA [None]
  - HOT FLUSH [None]
  - HYPERHIDROSIS [None]
  - OESOPHAGEAL ULCER [None]
  - PRURITUS [None]
  - RETCHING [None]
  - WEIGHT DECREASED [None]
